FAERS Safety Report 9012386 (Version 1)
Quarter: 2013Q1

REPORT INFORMATION
  Report Type: Spontaneous
  Country: JP (occurrence: JP)
  Receive Date: 20130114
  Receipt Date: 20130114
  Transmission Date: 20140127
  Serious: Yes (Death)
  Sender: FDA-Public Use
  Company Number: JP-ASTELLAS-2013JP000202

PATIENT
  Age: 58 Year
  Sex: Male
  Weight: 64 kg

DRUGS (11)
  1. FUNGUARD [Suspect]
     Dosage: 100 MG, UNKNOWN/D
     Route: 065
  2. MINOCYCLINE [Concomitant]
     Dosage: 100 MG, UNKNOWN/D
     Route: 065
  3. BIAPENEM [Concomitant]
     Dosage: 0.6 G, UNKNOWN/D
     Route: 065
  4. SIVELESTAT [Concomitant]
     Indication: ACUTE LUNG INJURY
     Dosage: 250 MG, UNKNOWN/D
     Route: 065
  5. GLOBULIN [Concomitant]
     Indication: IMMUNODEFICIENCY
     Dosage: 12.5 G, UNKNOWN/D
     Route: 065
  6. GLOBULIN [Concomitant]
     Dosage: 12.5 G, UNKNOWN/D
     Route: 065
  7. RIFAMPICIN [Concomitant]
     Dosage: 450 MG, UNKNOWN/D
     Route: 065
  8. VANCOMYCIN [Concomitant]
     Dosage: 1 G, UNKNOWN/D
     Route: 065
  9. CIPROFLOXACIN [Concomitant]
     Dosage: 600 MG, UNKNOWN/D
     Route: 065
  10. INTERFERON ALFA [Concomitant]
     Indication: RENAL CELL CARCINOMA
     Route: 065
  11. INTERFERON ALFA [Concomitant]
     Indication: METASTASES TO BONE

REACTIONS (2)
  - Drug ineffective [Unknown]
  - Bronchopulmonary aspergillosis [Fatal]
